FAERS Safety Report 13966973 (Version 1)
Quarter: 2017Q3

REPORT INFORMATION
  Report Type: Spontaneous
  Country: PT (occurrence: PT)
  Receive Date: 20170914
  Receipt Date: 20170914
  Transmission Date: 20171128
  Serious: Yes (Hospitalization, Other)
  Sender: FDA-Public Use
  Company Number: PT-ALVOGEN-2017-ALVOGEN-093466

PATIENT
  Age: 57 Year
  Sex: Male

DRUGS (2)
  1. TRAZODONE [Suspect]
     Active Substance: TRAZODONE HYDROCHLORIDE
     Indication: DEPRESSION
  2. DIAZEPAM. [Suspect]
     Active Substance: DIAZEPAM
     Indication: DEPRESSION

REACTIONS (2)
  - Liver transplant [Recovered/Resolved]
  - Acute hepatic failure [Recovered/Resolved]
